FAERS Safety Report 21798507 (Version 2)
Quarter: 2023Q2

REPORT INFORMATION
  Report Type: Report from Study
  Country: US (occurrence: US)
  Receive Date: 20221230
  Receipt Date: 20230510
  Transmission Date: 20230722
  Serious: No
  Sender: FDA-Public Use
  Company Number: US-ABBVIE-4202624

PATIENT
  Sex: Male

DRUGS (4)
  1. SKYRIZI [Suspect]
     Active Substance: RISANKIZUMAB-RZAA
     Indication: Psoriasis
     Dosage: FIRST ADMIN DATE: 2022, STRENGTH: 150 MG
     Route: 058
  2. SKYRIZI [Suspect]
     Active Substance: RISANKIZUMAB-RZAA
     Indication: Psoriatic arthropathy
     Dosage: WEEK 0, STRENGTH: 150 MG
     Route: 058
     Dates: start: 202206, end: 202206
  3. SKYRIZI [Suspect]
     Active Substance: RISANKIZUMAB-RZAA
     Dosage: WEEK 4, STRENGTH: 150 MG
     Route: 058
     Dates: start: 202207, end: 202207
  4. SKYRIZI [Suspect]
     Active Substance: RISANKIZUMAB-RZAA
     Route: 058
     Dates: start: 20220619

REACTIONS (12)
  - Injection site reaction [Unknown]
  - Erythema [Unknown]
  - Injection site pain [Unknown]
  - Pain of skin [Unknown]
  - Injection site bruising [Unknown]
  - Skin burning sensation [Unknown]
  - Injection site swelling [Unknown]
  - Injection site nodule [Unknown]
  - Pneumonia viral [Recovered/Resolved]
  - Product preparation error [Unknown]
  - Contusion [Unknown]
  - Pain [Unknown]

NARRATIVE: CASE EVENT DATE: 20220101
